FAERS Safety Report 8308520-4 (Version None)
Quarter: 2012Q2

REPORT INFORMATION
  Report Type: 
  Country: None (occurrence: None)
  Receive Date: 20120424
  Receipt Date: 20120417
  Transmission Date: 20120825
  Serious: Yes (Hospitalization, Other)
  Sender: FDA-Public Use
  Company Number: DE-ABBOTT-11P-062-0699391-00

PATIENT
  Sex: Female
  Weight: 76 kg

DRUGS (19)
  1. HUMIRA [Suspect]
     Route: 058
     Dates: start: 20060801
  2. PREDNISOLONE [Concomitant]
     Indication: PRODUCT USED FOR UNKNOWN INDICATION
     Dosage: 5MG DAILY
  3. HYDROCORTISONE [Concomitant]
     Dosage: 5 MG DAILY
     Dates: start: 20111121
  4. ESOMEPRAZOLE MAGNESIUM [Concomitant]
     Indication: PRODUCT USED FOR UNKNOWN INDICATION
  5. BISOPROLOL FUMARATE [Concomitant]
     Indication: PRODUCT USED FOR UNKNOWN INDICATION
     Dosage: 2.5MG DAILY
  6. STEROID [Concomitant]
     Indication: CROHN'S DISEASE
     Route: 048
  7. CALCIUM CARBONATE [Concomitant]
     Indication: PRODUCT USED FOR UNKNOWN INDICATION
     Dosage: 500MG CALCIUM + 400 IU VIT D BID
     Route: 048
  8. HUMIRA [Suspect]
     Indication: CROHN'S DISEASE
     Route: 058
     Dates: start: 20060515, end: 20060701
  9. FOLIC ACID [Concomitant]
     Indication: PRODUCT USED FOR UNKNOWN INDICATION
  10. PREDNISONE TAB [Concomitant]
     Dosage: 40 MG DAILY
     Dates: start: 20111030, end: 20111120
  11. HUMIRA [Suspect]
     Dates: start: 20070530
  12. DIPYRONE TAB [Concomitant]
     Indication: PRODUCT USED FOR UNKNOWN INDICATION
  13. BUPRENORPHINE HCL [Concomitant]
     Indication: PRODUCT USED FOR UNKNOWN INDICATION
     Dosage: 5MG DAILY
  14. ZINK [Concomitant]
     Indication: PRODUCT USED FOR UNKNOWN INDICATION
     Dosage: DAILY
  15. ZINK [Concomitant]
     Dosage: OD
  16. HYDROCORTISONE [Concomitant]
     Indication: PRODUCT USED FOR UNKNOWN INDICATION
     Dosage: 5 MG DAILY
     Dates: start: 20110405
  17. PREDNISONE TAB [Concomitant]
     Indication: CROHN'S DISEASE
     Dosage: 5 MG DAILY
     Dates: start: 19950701, end: 20110404
  18. XUSAL [Concomitant]
     Indication: PRODUCT USED FOR UNKNOWN INDICATION
     Dates: start: 20080701
  19. ZINKAMIN [Concomitant]
     Indication: PRODUCT USED FOR UNKNOWN INDICATION

REACTIONS (9)
  - ABDOMINAL PAIN UPPER [None]
  - ABDOMINAL PAIN [None]
  - PYLORIC STENOSIS [None]
  - GASTRITIS [None]
  - NAUSEA [None]
  - GASTRIC ULCER [None]
  - DECREASED APPETITE [None]
  - OBSTRUCTION GASTRIC [None]
  - CROHN'S DISEASE [None]
